FAERS Safety Report 17638560 (Version 2)
Quarter: 2020Q2

REPORT INFORMATION
  Report Type: Spontaneous
  Country: US (occurrence: US)
  Receive Date: 20200407
  Receipt Date: 20200507
  Transmission Date: 20200713
  Serious: No
  Sender: FDA-Public Use
  Company Number: US-BAUSCH-BL-2020-006808

PATIENT
  Age: 89 Year
  Sex: Female

DRUGS (3)
  1. LATANOPROST OPHTHALMIC SOLUTION 0.005% [Suspect]
     Active Substance: LATANOPROST
     Indication: GLAUCOMA
     Dosage: STARTED ABOUT A YEAR AGO FROM THE DATE OF REPORT, 1 DROP IN EACH EYE ONCE DAILY AT NIGHT
     Route: 047
     Dates: start: 2019
  2. AMLODIPINE [Concomitant]
     Active Substance: AMLODIPINE BESYLATE
     Indication: PRODUCT USED FOR UNKNOWN INDICATION
     Route: 048
  3. SYNTHROID [Concomitant]
     Active Substance: LEVOTHYROXINE SODIUM
     Indication: PRODUCT USED FOR UNKNOWN INDICATION
     Route: 048

REACTIONS (11)
  - Vision blurred [Unknown]
  - Cough [Unknown]
  - Eye irritation [Unknown]
  - Eye pain [Unknown]
  - Diplopia [Unknown]
  - Oropharyngeal pain [Unknown]
  - Photophobia [Unknown]
  - Nasal congestion [Unknown]
  - Periorbital swelling [Unknown]
  - Chest discomfort [Unknown]
  - Ocular hyperaemia [Unknown]

NARRATIVE: CASE EVENT DATE: 2020
